FAERS Safety Report 8162968-X (Version None)
Quarter: 2012Q1

REPORT INFORMATION
  Report Type: 
  Country: None (occurrence: None)
  Receive Date: 20120103
  Receipt Date: 20110909
  Transmission Date: 20120608
  Serious: Yes (Other)
  Sender: FDA-Public Use
  Company Number: AE-2011-001484

PATIENT
  Age: 59 Year
  Sex: Male

DRUGS (6)
  1. RIBASPHERE [Concomitant]
  2. COREG [Concomitant]
  3. PLAVIX [Concomitant]
  4. MICARDIS [Concomitant]
  5. INCIVEK [Suspect]
     Dosage: 2250 MG (750 MG, 3 IN 1 D), ORAL
     Route: 048
     Dates: start: 20110805
  6. PEGASYS [Concomitant]

REACTIONS (1)
  - ANAEMIA [None]
